FAERS Safety Report 9352056 (Version 2)
Quarter: 2013Q2

REPORT INFORMATION
  Report Type: Spontaneous
  Country: DE (occurrence: None)
  Receive Date: 20130612
  Receipt Date: 20130617
  Transmission Date: 20140414
  Serious: Yes (Other)
  Sender: FDA-Public Use
  Company Number: AUR-APL-2013-04803

PATIENT
  Age: 75 Year
  Sex: Male
  Weight: 87 kg

DRUGS (5)
  1. CLOPIDOGREL [Suspect]
     Indication: STENT PLACEMENT
     Route: 048
     Dates: start: 20130212
  2. ASS (ACETYLSALICYLIC ACID [Concomitant]
  3. ATORVASTATIN (ATORVASTATIN) [Concomitant]
  4. VOTUM (OLMESARTAN MEDOXOMIL) [Concomitant]
  5. DUODART (DUTAS-T) [Concomitant]

REACTIONS (4)
  - Dermatitis allergic [None]
  - Flushing [None]
  - Tachycardia [None]
  - Anaphylactic reaction [None]
